FAERS Safety Report 18741839 (Version 3)
Quarter: 2021Q1

REPORT INFORMATION
  Report Type: Spontaneous
  Country: US (occurrence: US)
  Receive Date: 20210114
  Receipt Date: 20210324
  Transmission Date: 20210419
  Serious: No
  Sender: FDA-Public Use
  Company Number: US-BAUSCH-BL-2020-034069

PATIENT
  Age: 67 Year
  Sex: Female
  Weight: 77.18 kg

DRUGS (2)
  1. LACRISERT [Suspect]
     Active Substance: HYDROXYPROPYL CELLULOSE
     Route: 065
     Dates: start: 202012
  2. LACRISERT [Suspect]
     Active Substance: HYDROXYPROPYL CELLULOSE
     Indication: DRY EYE
     Dosage: END DATE: HAVE BEEN TAKING IT WHEN PATIENT WAS 40 YEARS OLD
     Route: 065
     Dates: end: 1993

REACTIONS (5)
  - Product availability issue [Unknown]
  - Eye ulcer [Not Recovered/Not Resolved]
  - Dry eye [Not Recovered/Not Resolved]
  - Corneal abrasion [Unknown]
  - Therapy interrupted [Unknown]
